FAERS Safety Report 5670237-2 (Version None)
Quarter: 2008Q1

REPORT INFORMATION
  Report Type: 
  Country: None (occurrence: None)
  Receive Date: 20080318
  Receipt Date: 20080306
  Transmission Date: 20080703
  Serious: Yes (Death)
  Sender: FDA-Public Use
  Company Number: GB-RANBAXY-2008RR-13530

PATIENT

DRUGS (4)
  1. RISPERIDONE 1MG FILM-COATED TABLETS [Suspect]
     Dosage: 1 MG, UNK
     Route: 048
  2. RISPERIDONE [Suspect]
     Indication: PSYCHOTIC DISORDER
     Dosage: 25 MG, UNK
     Route: 030
     Dates: start: 20060801
  3. RISPERIDONE [Suspect]
     Dosage: 37.5 MG, UNK
     Route: 030
     Dates: start: 20060703
  4. RISPERIDONE [Suspect]
     Dosage: 50 MG, UNK
     Route: 030
     Dates: start: 20060904

REACTIONS (3)
  - ARTERIOSCLEROSIS [None]
  - DRUG INEFFECTIVE [None]
  - FALL [None]
